FAERS Safety Report 11025880 (Version 1)
Quarter: 2015Q2

REPORT INFORMATION
  Report Type: Spontaneous
  Country: US (occurrence: US)
  Receive Date: 20150414
  Receipt Date: 20150414
  Transmission Date: 20150821
  Serious: Yes (Hospitalization, Other)
  Sender: FDA-Public Use
  Company Number: US-MYLANLABS-2015M1011019

PATIENT

DRUGS (2)
  1. FENTANYL TRANSDERMAL SYSTEM [Suspect]
     Active Substance: FENTANYL
     Indication: PAIN
     Dosage: 100 ?G, QH, CHANGES Q 72HR
     Route: 062
     Dates: start: 2014, end: 201410
  2. FENTANYL TRANSDERMAL SYSTEM [Suspect]
     Active Substance: FENTANYL
     Dosage: 100 ?G, QH, CHANGES Q 48H
     Route: 062
     Dates: start: 201410

REACTIONS (6)
  - Palpitations [Recovered/Resolved]
  - Application site erythema [Recovered/Resolved]
  - Nausea [Not Recovered/Not Resolved]
  - Breakthrough pain [Recovering/Resolving]
  - Vomiting [Not Recovered/Not Resolved]
  - Blood pressure increased [Recovered/Resolved]

NARRATIVE: CASE EVENT DATE: 201407
